FAERS Safety Report 5624244-6 (Version None)
Quarter: 2008Q1

REPORT INFORMATION
  Report Type: 
  Country: None (occurrence: None)
  Receive Date: 20080117
  Receipt Date: 20070910
  Transmission Date: 20080703
  Serious: Yes (Life-Threatening)
  Sender: FDA-Public Use
  Company Number: 516222

PATIENT
  Age: 51 Year
  Sex: Female

DRUGS (1)
  1. ROCEPHIN [Suspect]
     Indication: CYSTITIS
     Dosage: 1 GRAM INTRAMUSCULAR
     Route: 030
     Dates: start: 20070906, end: 20070907

REACTIONS (1)
  - ANAPHYLACTIC REACTION [None]
